FAERS Safety Report 21571267 (Version 1)
Quarter: 2022Q4

REPORT INFORMATION
  Report Type: Report from Study
  Country: CA (occurrence: CA)
  Receive Date: 20221109
  Receipt Date: 20221109
  Transmission Date: 20230112
  Serious: Yes (Other)
  Sender: FDA-Public Use
  Company Number: CA-JNJFOC-20221110937

PATIENT
  Age: 13 Year
  Sex: Female

DRUGS (1)
  1. REMICADE [Suspect]
     Active Substance: INFLIXIMAB
     Indication: Osteopenia
     Dosage: ON 07-NOV-2022 THE PATIENT COMPLETED PARTIAL MAYO SURVEY AND RECEIVED 74TH INFUSION OF 400 MG OF REM
     Route: 042
     Dates: start: 20160424

REACTIONS (5)
  - Syncope [Recovering/Resolving]
  - General physical health deterioration [Unknown]
  - Cough [Recovering/Resolving]
  - Pyrexia [Recovered/Resolved]
  - Frequent bowel movements [Unknown]

NARRATIVE: CASE EVENT DATE: 20221102
